FAERS Safety Report 9949918 (Version 1)
Quarter: 2014Q1

REPORT INFORMATION
  Report Type: Report from Study
  Country: US (occurrence: US)
  Receive Date: 20140304
  Receipt Date: 20140304
  Transmission Date: 20141002
  Serious: No
  Sender: FDA-Public Use
  Company Number: US-ABBVIE-13P-163-1067542-00

PATIENT
  Age: 68 Year
  Sex: Female

DRUGS (16)
  1. HUMIRA [Suspect]
     Indication: CROHN^S DISEASE
     Dosage: SECOND LOADING DOSE
     Dates: start: 20130304, end: 20130304
  2. HUMIRA [Suspect]
  3. LEVOTHYROXINE [Concomitant]
     Indication: HYPOTHYROIDISM
     Dosage: 200 MCG DAILY
  4. TOPROMAX [Concomitant]
     Indication: MIGRAINE PROPHYLAXIS
  5. SIMVASTATIN [Concomitant]
     Indication: BLOOD CHOLESTEROL
     Dosage: AT BEDTIME
  6. ZYRTEC [Concomitant]
     Indication: SEASONAL ALLERGY
     Dosage: 10 MG DAILY
  7. TRAZODONE [Concomitant]
     Indication: INSOMNIA
     Dosage: ONE OR TWO AT BEDTIME
  8. APRISO [Concomitant]
     Indication: COELIAC DISEASE
     Dosage: 4 DAILY
  9. MAXALT [Concomitant]
     Indication: MIGRAINE
     Dosage: ONLY AT ONSET OF MIGRAINE
  10. ROPINIROLE [Concomitant]
     Indication: RESTLESS LEGS SYNDROME
     Dosage: ONCE AT BEDTIME
  11. LORTAB [Concomitant]
     Indication: PAIN IN EXTREMITY
     Dosage: 7.5/500MG ONE EVERY 4-6 HOURS AS NEEDED
  12. LORTAB [Concomitant]
     Indication: BACK PAIN
  13. BENZONATATE [Concomitant]
     Indication: UPPER-AIRWAY COUGH SYNDROME
     Dosage: DON^T TAKE VERY OFTEN, MAY TAKE ONE IF HAD BAD NASAL DRIP
  14. OXYBUTYNINE [Concomitant]
     Indication: HYPERTONIC BLADDER
  15. ASA [Concomitant]
     Indication: ATRIAL SEPTAL DEFECT
  16. ONDANSETRONE MYLAN [Concomitant]
     Indication: ATRIAL SEPTAL DEFECT

REACTIONS (1)
  - Injection site bruising [Recovering/Resolving]
